FAERS Safety Report 7526760-9 (Version None)
Quarter: 2011Q2

REPORT INFORMATION
  Report Type: 
  Country: None (occurrence: None)
  Receive Date: 20110606
  Receipt Date: 20110524
  Transmission Date: 20111010
  Serious: Yes (Other)
  Sender: FDA-Public Use
  Company Number: US-BAYER-2011-046571

PATIENT
  Sex: Male

DRUGS (2)
  1. ASPIRIN [Suspect]
     Dosage: 75 MG, UNK
     Route: 048
  2. PLAVIX [Suspect]

REACTIONS (3)
  - FALL [None]
  - LACERATION [None]
  - TRAUMATIC HAEMORRHAGE [None]
